FAERS Safety Report 4576288-3 (Version None)
Quarter: 2005Q1

REPORT INFORMATION
  Report Type: 
  Country: None (occurrence: None)
  Receive Date: 20050119
  Receipt Date: 20031230
  Transmission Date: 20050727
  Serious: Yes (Other)
  Sender: FDA-Public Use
  Company Number: A03200302041

PATIENT
  Sex: Female

DRUGS (2)
  1. PLAVIX [Suspect]
     Indication: QUADRUPLE VESSEL BYPASS GRAFT
     Dosage: 75 MG QD - ORAL
     Route: 048
     Dates: start: 20030501, end: 20030601
  2. ACETYLSALICYLIC ACID - ACETYLSALICYLIC ACID - UNKNOWN - UNIT DOSE : UN [Suspect]
     Dates: end: 20030701

REACTIONS (1)
  - GASTROINTESTINAL HAEMORRHAGE [None]
